FAERS Safety Report 21133810 (Version 3)
Quarter: 2022Q4

REPORT INFORMATION
  Report Type: Other
  Country: DE (occurrence: None)
  Receive Date: 20220726
  Receipt Date: 20221110
  Transmission Date: 20230113
  Serious: No
  Sender: FDA-Public Use
  Company Number: DE-ROCHE-2355935

PATIENT
  Age: 30 Year
  Sex: Female

DRUGS (7)
  1. OCREVUS [Suspect]
     Active Substance: OCRELIZUMAB
     Indication: Relapsing-remitting multiple sclerosis
     Dosage: ON 04/JUN/2020, SHE RECEIVED OCRELIZUMAB INFUSION. SUBSEQUENT DOSE: 06/JAN/2022.
     Route: 042
     Dates: start: 20181128
  2. OCREVUS [Suspect]
     Active Substance: OCRELIZUMAB
     Dosage: 04/JUN/2020 AND 03/DEC/2020
     Route: 042
     Dates: start: 20190529
  3. OCREVUS [Suspect]
     Active Substance: OCRELIZUMAB
     Route: 042
     Dates: start: 20200604
  4. OCREVUS [Suspect]
     Active Substance: OCRELIZUMAB
     Route: 042
     Dates: start: 20201203, end: 20220726
  5. EUTHYROX [Concomitant]
     Active Substance: LEVOTHYROXINE SODIUM
  6. CHOLECALCIFEROL [Concomitant]
     Active Substance: CHOLECALCIFEROL
  7. MENAQUINONE 6 [Concomitant]
     Active Substance: MENAQUINONE 6

REACTIONS (7)
  - Paraesthesia [Unknown]
  - Drug ineffective [Unknown]
  - Fatigue [Recovered/Resolved]
  - COVID-19 [Recovered/Resolved]
  - Sensory disturbance [Not Recovered/Not Resolved]
  - Listless [Recovered/Resolved]
  - Maternal exposure before pregnancy [Unknown]

NARRATIVE: CASE EVENT DATE: 20200604
